FAERS Safety Report 5679940-1 (Version None)
Quarter: 2008Q1

REPORT INFORMATION
  Report Type: 
  Country: None (occurrence: None)
  Receive Date: 20080324
  Receipt Date: 20080306
  Transmission Date: 20080703
  Serious: Yes (Death, Hospitalization, Other)
  Sender: FDA-Public Use
  Company Number: 2008EU000347

PATIENT
  Age: 36 Year
  Sex: Female

DRUGS (2)
  1. TACROLIMUS [Suspect]
     Indication: LIVER TRANSPLANT
  2. ENCORTON(PREDNISONE ACETATE) [Suspect]
     Indication: LIVER TRANSPLANT

REACTIONS (6)
  - COAGULOPATHY [None]
  - HAEMODIALYSIS [None]
  - LYMPHOPROLIFERATIVE DISORDER [None]
  - RENAL FAILURE [None]
  - SUBILEUS [None]
  - UPPER RESPIRATORY TRACT INFECTION [None]
